FAERS Safety Report 6329315-7 (Version None)
Quarter: 2009Q3

REPORT INFORMATION
  Report Type: 
  Country: None (occurrence: None)
  Receive Date: 20090826
  Receipt Date: 20090817
  Transmission Date: 20100115
  Serious: Yes (Death)
  Sender: FDA-Public Use
  Company Number: BE-ABBOTT-09P-013-0591601-00

PATIENT
  Sex: Male
  Weight: 72 kg

DRUGS (1)
  1. LUCRIN DEPOT 11.25 MG [Suspect]
     Indication: PROSTATE CANCER
     Dates: start: 20070122, end: 20080211

REACTIONS (2)
  - CARDIAC FAILURE [None]
  - EMPHYSEMA [None]
